FAERS Safety Report 4432827-4 (Version None)
Quarter: 2004Q3

REPORT INFORMATION
  Report Type: 
  Country: None (occurrence: None)
  Receive Date: 20040823
  Receipt Date: 20040706
  Transmission Date: 20050211
  Serious: Yes (Life-Threatening, Hospitalization)
  Sender: FDA-Public Use
  Company Number: 04H-062-0270789-00

PATIENT
  Age: 76 Year
  Sex: Female

DRUGS (9)
  1. VANCOMYCIN HYDROCHLORIDE [Suspect]
     Indication: LOCALISED INFECTION
     Dosage: INTRAVENOUS
     Route: 042
     Dates: start: 20040303, end: 20040303
  2. LEVOTHYROXINE SODIUM [Concomitant]
  3. FUROSEMIDE [Concomitant]
  4. ACETYLSALICYLIC ACID [Concomitant]
  5. CALCIUM ACETATE [Concomitant]
  6. OMEPRAZOLE [Concomitant]
  7. ISOPHANE INSULIN [Concomitant]
  8. METOCLOPRAMIDE [Concomitant]
  9. IODINE PRODUCTS [Concomitant]

REACTIONS (8)
  - AMNESIA [None]
  - ANAPHYLACTIC SHOCK [None]
  - CARDIAC ARREST [None]
  - FEELING HOT [None]
  - HYPERTENSION [None]
  - INFUSION RELATED REACTION [None]
  - NAUSEA [None]
  - VOMITING [None]
